FAERS Safety Report 14225304 (Version 1)
Quarter: 2017Q4

REPORT INFORMATION
  Report Type: Spontaneous
  Country: US (occurrence: None)
  Receive Date: 20171122
  Receipt Date: 20171122
  Transmission Date: 20180321
  Serious: No
  Sender: FDA-Public Use
  Company Number: None

PATIENT
  Age: 48 Year
  Sex: Female

DRUGS (1)
  1. REMICADE [Suspect]
     Active Substance: INFLIXIMAB
     Dosage: FREQUENCY - EVERY 4 WEEKS
     Route: 042
     Dates: start: 20151006, end: 20171121

REACTIONS (2)
  - Drug ineffective [None]
  - Liver disorder [None]

NARRATIVE: CASE EVENT DATE: 20171121
